FAERS Safety Report 16103651 (Version 4)
Quarter: 2019Q2

REPORT INFORMATION
  Report Type: Spontaneous
  Country: JP (occurrence: JP)
  Receive Date: 20190322
  Receipt Date: 20190419
  Transmission Date: 20190711
  Serious: Yes (Other)
  Sender: FDA-Public Use
  Company Number: JP-009507513-1903JPN008860

PATIENT
  Age: 39 Year
  Sex: Male
  Weight: 73.3 kg

DRUGS (8)
  1. AMOXICILLIN. [Suspect]
     Active Substance: AMOXICILLIN
     Dosage: 3 TABLET
  2. DASEN [Suspect]
     Active Substance: SERRAPEPTASE
     Dosage: 3 TABLETS
  3. CEFDITOREN PIVOXIL. [Suspect]
     Active Substance: CEFDITOREN PIVOXIL
     Dosage: 3 TABLETS
  4. ACETAMINOPHEN (+) IBUPROFEN (+) MAGNESIUM TRISILICATE [Suspect]
     Active Substance: ACETAMINOPHEN\IBUPROFEN\MAGNESIUM TRISILICATE
     Indication: PYREXIA
     Dosage: 0.5 GRAM, BID
  5. PIPERACILLIN. [Suspect]
     Active Substance: PIPERACILLIN SODIUM
  6. IMIPENEM AND CILASTATIN [Suspect]
     Active Substance: CILASTATIN SODIUM\IMIPENEM
     Dosage: UNK UNK, BID
  7. TOCLASE [Suspect]
     Active Substance: PENTOXYVERINE
     Dosage: 3 TABLETS
  8. VOLTAREN [Suspect]
     Active Substance: DICLOFENAC SODIUM
     Indication: PYREXIA
     Dosage: 5 DOSES

REACTIONS (3)
  - Rhabdomyolysis [Recovering/Resolving]
  - Toxic skin eruption [Recovering/Resolving]
  - Pneumonia [Recovering/Resolving]
